FAERS Safety Report 7589095-4 (Version None)
Quarter: 2011Q3

REPORT INFORMATION
  Report Type: 
  Country: None (occurrence: None)
  Receive Date: 20110705
  Receipt Date: 20110624
  Transmission Date: 20111222
  Serious: Yes (Death)
  Sender: FDA-Public Use
  Company Number: TW-BAXTER-2011BH021093

PATIENT
  Age: 59 Year
  Sex: Male

DRUGS (6)
  1. DIANEAL [Suspect]
     Route: 033
     Dates: start: 20040201
  2. EXTRANEAL [Suspect]
     Indication: PERITONEAL DIALYSIS
     Route: 033
     Dates: start: 20040201
  3. DIANEAL [Suspect]
     Route: 033
     Dates: start: 20040201
  4. EXTRANEAL [Suspect]
     Route: 033
     Dates: start: 20040201
  5. DIANEAL [Suspect]
     Indication: PERITONEAL DIALYSIS
     Route: 033
     Dates: start: 20040201
  6. DIANEAL [Suspect]
     Indication: PERITONEAL DIALYSIS
     Route: 033
     Dates: start: 20040201

REACTIONS (1)
  - DEATH [None]
